FAERS Safety Report 11327896 (Version 2)
Quarter: 2015Q4

REPORT INFORMATION
  Report Type: Spontaneous
  Country: CH (occurrence: CH)
  Receive Date: 20150731
  Receipt Date: 20151103
  Transmission Date: 20160304
  Serious: Yes (Life-Threatening, Hospitalization)
  Sender: FDA-Public Use
  Company Number: CH-PFIZER INC-2015244150

PATIENT
  Age: 47 Year
  Sex: Male
  Weight: 97 kg

DRUGS (5)
  1. ZAVEDOS [Suspect]
     Active Substance: IDARUBICIN
     Indication: MYELODYSPLASTIC SYNDROME TRANSFORMATION
     Dosage: 26 MG, 1X/DAY
     Route: 041
     Dates: start: 20150425, end: 20150427
  2. CELIPROLOL [Concomitant]
     Active Substance: CELIPROLOL
     Dosage: 200 MG, DAILY
  3. CYTOSAR [Interacting]
     Active Substance: CYTARABINE
     Indication: MYELODYSPLASTIC SYNDROME TRANSFORMATION
     Dosage: 440 MG, 1X/DAY
     Route: 041
     Dates: start: 20150425, end: 20150501
  4. FENOFIBRATE. [Concomitant]
     Active Substance: FENOFIBRATE
     Dosage: 100 MG, DAILY
  5. AMLODIPINE [Concomitant]
     Active Substance: AMLODIPINE BESYLATE
     Dosage: 5 MG, DAILY

REACTIONS (5)
  - Drug interaction [Unknown]
  - Device related infection [Recovered/Resolved]
  - Neutropenic sepsis [Recovered/Resolved]
  - Agranulocytosis [Recovered/Resolved]
  - Febrile neutropenia [Recovered/Resolved]

NARRATIVE: CASE EVENT DATE: 2015
